FAERS Safety Report 7868616-8 (Version None)
Quarter: 2011Q4

REPORT INFORMATION
  Report Type: 
  Country: None (occurrence: None)
  Receive Date: 20111028
  Receipt Date: 20101215
  Transmission Date: 20120403
  Serious: No
  Sender: FDA-Public Use
  Company Number: US-AMGEN-USASP2010009566

PATIENT
  Age: 47 Year
  Sex: Female

DRUGS (1)
  1. ENBREL [Suspect]
     Indication: RHEUMATOID ARTHRITIS
     Dates: start: 20090201

REACTIONS (6)
  - RESPIRATORY TRACT CONGESTION [None]
  - COUGH [None]
  - DIARRHOEA [None]
  - PAIN [None]
  - CHILLS [None]
  - DYSURIA [None]
